FAERS Safety Report 11515578 (Version 1)
Quarter: 2015Q3

REPORT INFORMATION
  Report Type: Spontaneous
  Country: DE (occurrence: DE)
  Receive Date: 20150916
  Receipt Date: 20150916
  Transmission Date: 20151125
  Serious: Yes (Other)
  Sender: FDA-Public Use
  Company Number: DE-TEVA-588190GER

PATIENT
  Age: 61 Year
  Sex: Male
  Weight: 85 kg

DRUGS (2)
  1. METOPROLOL-RATIOPHARM SUCCINAT 47.5MG RETARDTABLETTEN [Suspect]
     Active Substance: METOPROLOL
     Indication: HYPERTENSION
     Dosage: 95 MILLIGRAM DAILY; 47.5 MG METOPROLOLSUCCINATE CORRESPONDS 50MG METOPROLOLTARTRATE
     Route: 048
     Dates: start: 20150401
  2. CANDESARTAN [Concomitant]
     Active Substance: CANDESARTAN
     Indication: HYPERTENSION
     Dosage: 32 MILLIGRAM DAILY;
     Route: 048
     Dates: start: 20150401

REACTIONS (2)
  - Tinnitus [Not Recovered/Not Resolved]
  - Quality of life decreased [Not Recovered/Not Resolved]

NARRATIVE: CASE EVENT DATE: 201506
